FAERS Safety Report 8256607-7 (Version None)
Quarter: 2012Q1

REPORT INFORMATION
  Report Type: 
  Country: None (occurrence: None)
  Receive Date: 20120322
  Receipt Date: 20120313
  Transmission Date: 20120608
  Serious: Yes (Other)
  Sender: FDA-Public Use
  Company Number: PHHY2012FR022782

PATIENT
  Sex: Male

DRUGS (2)
  1. COZAAR [Concomitant]
     Dates: end: 20101101
  2. RASILEZ [Suspect]
     Indication: HYPERTENSION
     Dosage: 150 MG, QD
     Route: 048
     Dates: start: 20101101, end: 20120101

REACTIONS (1)
  - RENAL ANEURYSM [None]
